FAERS Safety Report 16998503 (Version 2)
Quarter: 2019Q4

REPORT INFORMATION
  Report Type: Spontaneous
  Country: US (occurrence: US)
  Receive Date: 20191106
  Receipt Date: 20191126
  Transmission Date: 20200122
  Serious: Yes (Other)
  Sender: FDA-Public Use
  Company Number: US-LUPIN PHARMACEUTICALS INC.-2019-07124

PATIENT
  Age: 23 Year
  Sex: Male

DRUGS (7)
  1. VANCOMYCIN [Suspect]
     Active Substance: VANCOMYCIN
     Indication: HYPERSENSITIVITY
     Dosage: UNK
  2. VANCOMYCIN [Suspect]
     Active Substance: VANCOMYCIN
     Dosage: 0.025 MILLIGRAM PER MILLILITRE, INCREASING EVERY 15 MINUTES
  3. VANCOMYCIN [Suspect]
     Active Substance: VANCOMYCIN
     Dosage: 0.05 MILLIGRAM PER MILLILITRE, INCREASING EVERY 15 MINUTES
  4. VANCOMYCIN [Suspect]
     Active Substance: VANCOMYCIN
     Dosage: 250 MILLIGRAM, BID
  5. VANCOMYCIN [Suspect]
     Active Substance: VANCOMYCIN
     Dosage: 5 MILLIGRAM PER MILLILITRE, INCREASING EVERY 15 MINUTES
  6. VANCOMYCIN [Suspect]
     Active Substance: VANCOMYCIN
     Dosage: 50 MILLIGRAM PER MILLILITRE, INCREASING EVERY 15 MINUTES
  7. VANCOMYCIN [Suspect]
     Active Substance: VANCOMYCIN
     Dosage: 0.5 MILLIGRAM PER MILLILITRE, INCREASING EVERY 15 MINUTES

REACTIONS (5)
  - Pruritus [Unknown]
  - Red man syndrome [Unknown]
  - Allergy to immunoglobulin therapy [Unknown]
  - Angioedema [Unknown]
  - Dyspnoea [Unknown]
